FAERS Safety Report 23912553 (Version 1)
Quarter: 2024Q2

REPORT INFORMATION
  Report Type: Spontaneous
  Country: US (occurrence: US)
  Receive Date: 20240528
  Receipt Date: 20240528
  Transmission Date: 20240716
  Serious: No
  Sender: FDA-Public Use
  Company Number: US-SANOFI-02061747

PATIENT
  Age: 49 Year
  Sex: Male

DRUGS (1)
  1. LANTUS SOLOSTAR [Suspect]
     Active Substance: INSULIN GLARGINE
     Indication: Type 1 diabetes mellitus
     Dosage: 26 UNITS IN THE MORNING, 28 UNITS IN THE EVENING AND DRUG TREATMENT DURATION:5 DAYS
     Route: 058
     Dates: start: 1993

REACTIONS (1)
  - Off label use [Unknown]

NARRATIVE: CASE EVENT DATE: 19930101
